FAERS Safety Report 6986232-7 (Version None)
Quarter: 2010Q3

REPORT INFORMATION
  Report Type: 
  Country: None (occurrence: None)
  Receive Date: 20100915
  Receipt Date: 20090610
  Transmission Date: 20110219
  Serious: No
  Sender: FDA-Public Use
  Company Number: US-WYE-H09711509

PATIENT
  Sex: Female
  Weight: 60.38 kg

DRUGS (5)
  1. PRISTIQ [Suspect]
     Indication: DEPRESSION
     Route: 048
     Dates: start: 20081101, end: 20090301
  2. PRISTIQ [Suspect]
     Indication: ANXIETY
     Route: 048
     Dates: start: 20090301, end: 20090301
  3. PRISTIQ [Suspect]
     Route: 048
     Dates: start: 20090301
  4. ZANTAC [Concomitant]
  5. TRICOR [Concomitant]

REACTIONS (4)
  - DRUG EFFECT DECREASED [None]
  - FEELING JITTERY [None]
  - MALAISE [None]
  - WEIGHT INCREASED [None]
